FAERS Safety Report 11403631 (Version 1)
Quarter: 2015Q3

REPORT INFORMATION
  Report Type: Spontaneous
  Country: US (occurrence: None)
  Receive Date: 20150820
  Receipt Date: 20150820
  Transmission Date: 20151125
  Serious: Yes (Hospitalization)
  Sender: FDA-Public Use
  Company Number: None

PATIENT
  Age: 82 Year
  Sex: Male
  Weight: 118.8 kg

DRUGS (1)
  1. WARFARIN [Suspect]
     Active Substance: WARFARIN
     Indication: ATRIAL FIBRILLATION
     Route: 048
     Dates: start: 19910101, end: 20150727

REACTIONS (8)
  - Intra-abdominal haematoma [None]
  - Loss of consciousness [None]
  - Subcutaneous haematoma [None]
  - Haemoglobin decreased [None]
  - Fall [None]
  - Hypoglycaemia [None]
  - Ecchymosis [None]
  - International normalised ratio increased [None]

NARRATIVE: CASE EVENT DATE: 20150727
